FAERS Safety Report 24971761 (Version 1)
Quarter: 2025Q1

REPORT INFORMATION
  Report Type: Spontaneous
  Country: IT (occurrence: IT)
  Receive Date: 20250214
  Receipt Date: 20250214
  Transmission Date: 20250408
  Serious: Yes (Life-Threatening, Hospitalization, Other)
  Sender: PFIZER
  Company Number: None

PATIENT
  Age: 31 Year
  Sex: Female

DRUGS (6)
  1. LORAZEPAM [Suspect]
     Active Substance: LORAZEPAM
     Indication: Suicide attempt
     Route: 048
  2. CLOTHIAPINE [Suspect]
     Active Substance: CLOTHIAPINE
     Indication: Suicide attempt
     Route: 048
  3. RIVOTRIL [Suspect]
     Active Substance: CLONAZEPAM
     Indication: Suicide attempt
     Route: 048
  4. CHLORPROMAZINE [Suspect]
     Active Substance: CHLORPROMAZINE
     Indication: Suicide attempt
     Route: 048
  5. AMITRIPTYLINE HYDROCHLORIDE [Suspect]
     Active Substance: AMITRIPTYLINE HYDROCHLORIDE
     Indication: Suicide attempt
     Route: 048
  6. SPRAVATO [Concomitant]
     Active Substance: ESKETAMINE
     Indication: Major depression
     Route: 045
     Dates: start: 20250123, end: 20250123

REACTIONS (10)
  - Toxicity to various agents [Unknown]
  - Sopor [Unknown]
  - Disorganised speech [Unknown]
  - Cognitive disorder [Unknown]
  - Coma [Unknown]
  - Hypoxia [Unknown]
  - Sinus tachycardia [Unknown]
  - Drug abuse [Unknown]
  - Dysarthria [Unknown]
  - Bradykinesia [Unknown]

NARRATIVE: CASE EVENT DATE: 20250123
